FAERS Safety Report 8456104-X (Version None)
Quarter: 2012Q2

REPORT INFORMATION
  Report Type: 
  Country: None (occurrence: None)
  Receive Date: 20120621
  Receipt Date: 20120618
  Transmission Date: 20120825
  Serious: Yes (Death, Hospitalization)
  Sender: FDA-Public Use
  Company Number: PHHY2012BR052545

PATIENT
  Sex: Female

DRUGS (8)
  1. ASPIRIN [Concomitant]
     Indication: ANTICOAGULANT THERAPY
     Dosage: 1 DF, QD
  2. DIOVAN [Suspect]
     Indication: CARDIAC DISORDER
     Dosage: 80 MG, QD
     Route: 048
  3. AMIODARONE HYDROCHLORIDE [Concomitant]
     Indication: CARDIAC DISORDER
     Dosage: 200 MG, QD
  4. MIRTAZAPINE [Concomitant]
     Indication: DEMENTIA
     Dosage: 1 DF, UNK
  5. CLOZAPINE [Concomitant]
     Indication: DEMENTIA
     Dosage: 2 DF, QD
  6. EXELON [Suspect]
     Indication: DEMENTIA ALZHEIMER'S TYPE
     Dosage: 3 MG, BID
     Route: 048
  7. EXELON [Suspect]
     Indication: DEMENTIA
  8. SIMVASTATIN [Concomitant]
     Indication: BLOOD CHOLESTEROL
     Dosage: 1 DF, QD

REACTIONS (2)
  - CARDIO-RESPIRATORY ARREST [None]
  - MULTI-ORGAN FAILURE [None]
